FAERS Safety Report 12283027 (Version 1)
Quarter: 2016Q2

REPORT INFORMATION
  Report Type: Spontaneous
  Country: DE (occurrence: DE)
  Receive Date: 20160419
  Receipt Date: 20160419
  Transmission Date: 20160815
  Serious: Yes (Life-Threatening, Hospitalization)
  Sender: FDA-Public Use
  Company Number: DE-GILEAD-2016-0208868

PATIENT
  Age: 72 Year
  Sex: Male

DRUGS (4)
  1. PANTOZOL [Concomitant]
     Active Substance: PANTOPRAZOLE SODIUM
     Dosage: 40 MG, QD
     Route: 048
  2. KALIUM VERLA [Concomitant]
     Dosage: 20 MMOL, QD
     Route: 048
  3. ZYDELIG [Suspect]
     Active Substance: IDELALISIB
     Indication: B-CELL SMALL LYMPHOCYTIC LYMPHOMA
     Dosage: 150 MG, BID
     Route: 048
     Dates: start: 201601, end: 201603
  4. DECORTIN H [Concomitant]
     Active Substance: PREDNISOLONE
     Dosage: 50 MG, BID
     Route: 048

REACTIONS (3)
  - Depression [Recovering/Resolving]
  - Hypercalcaemia [Recovering/Resolving]
  - Disturbance in attention [Recovering/Resolving]

NARRATIVE: CASE EVENT DATE: 20160327
